FAERS Safety Report 6218796-5 (Version None)
Quarter: 2009Q2

REPORT INFORMATION
  Report Type: 
  Country: None (occurrence: None)
  Receive Date: 20090608
  Receipt Date: 20090604
  Transmission Date: 20091009
  Serious: Yes (Hospitalization)
  Sender: FDA-Public Use
  Company Number: JP-EISAI INC.-E2020-04688-SPO-JP

PATIENT
  Sex: Female
  Weight: 32 kg

DRUGS (3)
  1. ARICEPT [Suspect]
     Route: 048
     Dates: end: 20090602
  2. ARICEPT [Suspect]
     Route: 048
     Dates: start: 20090603, end: 20090603
  3. DOGMATYL [Concomitant]
     Dosage: UNKNOWN
     Dates: end: 20090603

REACTIONS (3)
  - DEPRESSED LEVEL OF CONSCIOUSNESS [None]
  - MIOSIS [None]
  - OVERDOSE [None]
